FAERS Safety Report 9292104 (Version 4)
Quarter: 2013Q2

REPORT INFORMATION
  Report Type: Spontaneous
  Country: IT (occurrence: IT)
  Receive Date: 20130516
  Receipt Date: 20130625
  Transmission Date: 20140414
  Serious: Yes (Hospitalization)
  Sender: FDA-Public Use
  Company Number: IT-ROCHE-1224840

PATIENT
  Age: 50 Year
  Sex: Male

DRUGS (2)
  1. VALIUM [Suspect]
     Indication: DRUG ABUSE
     Route: 048
     Dates: start: 20130502, end: 20130502
  2. RIVOTRIL [Suspect]
     Indication: DRUG ABUSE
     Route: 048
     Dates: start: 20130502, end: 20130502

REACTIONS (3)
  - Sopor [Recovered/Resolved]
  - Overdose [Unknown]
  - Drug abuse [Unknown]
